FAERS Safety Report 21699567 (Version 2)
Quarter: 2022Q4

REPORT INFORMATION
  Report Type: Report from Study
  Country: ZA (occurrence: ZA)
  Receive Date: 20221208
  Receipt Date: 20221219
  Transmission Date: 20230112
  Serious: Yes (Other)
  Sender: FDA-Public Use
  Company Number: ZA-CELLTRION INC.-2022ZA020619

PATIENT

DRUGS (5)
  1. INFLIXIMAB [Suspect]
     Active Substance: INFLIXIMAB
     Indication: Crohn^s disease
     Dosage: 300 MG AT 0 WEEKS; 2 WEEKS AND 6 WEEKS
     Route: 042
     Dates: start: 20220909
  2. INFLIXIMAB [Suspect]
     Active Substance: INFLIXIMAB
     Dosage: 300 MG AT 0 WEEKS; 2 WEEKS AND 6 WEEKS
     Route: 042
     Dates: start: 20220923
  3. INFLIXIMAB [Suspect]
     Active Substance: INFLIXIMAB
     Dosage: 300 MG AT 0 WEEKS; 2 WEEKS AND 6 WEEKS
     Route: 042
     Dates: start: 20221215
  4. ASACOL [Concomitant]
     Active Substance: MESALAMINE
  5. AZASAN [Concomitant]
     Active Substance: AZATHIOPRINE

REACTIONS (1)
  - Crohn^s disease [Unknown]

NARRATIVE: CASE EVENT DATE: 20221201
